FAERS Safety Report 23312924 (Version 2)
Quarter: 2024Q1

REPORT INFORMATION
  Report Type: Spontaneous
  Country: FR (occurrence: FR)
  Receive Date: 20231219
  Receipt Date: 20240103
  Transmission Date: 20240409
  Serious: Yes (Life-Threatening, Hospitalization, Other)
  Sender: FDA-Public Use
  Company Number: FR-SA-2016SA110753

PATIENT
  Age: 49 Year
  Sex: Female
  Weight: 67 kg

DRUGS (32)
  1. TRAMADOL [Suspect]
     Active Substance: TRAMADOL\TRAMADOL HYDROCHLORIDE
     Indication: Product used for unknown indication
     Dosage: 200 MILLIGRAM, ONCE A DAY
     Route: 048
  2. TRAMADOL [Suspect]
     Active Substance: TRAMADOL\TRAMADOL HYDROCHLORIDE
     Dosage: 6000 MILLIGRAM
     Route: 048
     Dates: start: 20160109, end: 20160109
  3. ARCOXIA [Suspect]
     Active Substance: ETORICOXIB
     Indication: Product used for unknown indication
     Dosage: 60 MILLIGRAM
     Route: 065
  4. ARCOXIA [Suspect]
     Active Substance: ETORICOXIB
     Dosage: 1680 MILLIGRAM TOTAL
     Route: 065
     Dates: start: 20160109, end: 20160109
  5. POTASSIUM CHLORIDE [Suspect]
     Active Substance: POTASSIUM CHLORIDE
     Indication: Product used for unknown indication
     Dosage: 10 DOSAGE FORM, ONCE A DAY
     Route: 065
     Dates: start: 20160109, end: 20160109
  6. LEVOTHYROXINE [Suspect]
     Active Substance: LEVOTHYROXINE
     Indication: Product used for unknown indication
     Dosage: 4500 MILLIGRAM, TOTAL (30 DF)
     Route: 065
     Dates: start: 20160109, end: 20160109
  7. LEVOTHYROXINE [Suspect]
     Active Substance: LEVOTHYROXINE
     Indication: Product used for unknown indication
     Dosage: 100 MICROGRAM, ONCE A DAY
     Route: 065
     Dates: start: 20160127
  8. LYRICA [Suspect]
     Active Substance: PREGABALIN
     Indication: Product used for unknown indication
     Dosage: 8400 MILLIGRAM TOTAL (56 DF)
     Route: 048
     Dates: start: 20160109, end: 20160109
  9. LYRICA [Suspect]
     Active Substance: PREGABALIN
     Indication: Product used for unknown indication
     Dosage: 1 DOSAGE FORM, TWO TIMES A DAY
     Route: 048
  10. LYRICA [Suspect]
     Active Substance: PREGABALIN
     Dosage: 300 MILLIGRAM, ONCE A DAY
     Route: 048
  11. MOBIC [Suspect]
     Active Substance: MELOXICAM
     Indication: Product used for unknown indication
     Dosage: 15 MILLIGRAM, ONCE A DAY
     Route: 065
  12. MOBIC [Suspect]
     Active Substance: MELOXICAM
     Dosage: 429 MILLIGRAM, TOTAL (28DF)
     Route: 065
     Dates: start: 20160109, end: 20160109
  13. BACLOFEN [Suspect]
     Active Substance: BACLOFEN
     Indication: Product used for unknown indication
     Dosage: 12 MILLIGRAM, ONCE A DAY
     Route: 048
  14. BACLOFEN [Suspect]
     Active Substance: BACLOFEN
     Dosage: 12 DOSAGE FORM TOTAL
     Route: 048
     Dates: start: 20160109, end: 20160109
  15. STELARA [Suspect]
     Active Substance: USTEKINUMAB
     Indication: Psoriasis
     Dosage: 90 MILLIGRAM, Q12W
     Route: 065
     Dates: start: 201506, end: 20160109
  16. STELARA [Suspect]
     Active Substance: USTEKINUMAB
     Dosage: 45 MILLIGRAM,Q12W
     Route: 058
     Dates: start: 20150226, end: 201506
  17. CYAMEMAZINE [Suspect]
     Active Substance: CYAMEMAZINE
     Indication: Product used for unknown indication
     Dosage: 12.5 MILLIGRAM, ONCE A DAY
     Route: 048
  18. CYAMEMAZINE [Suspect]
     Active Substance: CYAMEMAZINE
     Dosage: 150 DOSAGE FORM TOTAL (3000MG)
     Route: 048
     Dates: start: 20160109, end: 20160109
  19. ACETAMINOPHEN [Concomitant]
     Active Substance: ACETAMINOPHEN
     Indication: Pain
     Dosage: 3 GRAM, ONCE A DAY
     Route: 065
  20. ARAVA [Concomitant]
     Active Substance: LEFLUNOMIDE
     Indication: Product used for unknown indication
     Dosage: 20 MILLIGRAM, ONCE A DAY
     Route: 065
  21. ENOXAPARIN SODIUM [Concomitant]
     Active Substance: ENOXAPARIN SODIUM
     Indication: Product used for unknown indication
     Dosage: 0.4 MILLILITER TOTAL
     Route: 065
  22. ESOMEPRAZOLE MAGNESIUM [Concomitant]
     Active Substance: ESOMEPRAZOLE MAGNESIUM
     Indication: Product used for unknown indication
     Dosage: UNK
     Route: 065
  23. Enexium [Concomitant]
     Indication: Product used for unknown indication
     Dosage: 40 MILLIGRAM, ONCE A DAY
     Route: 048
  24. FORLAXGO [Concomitant]
     Indication: Product used for unknown indication
     Dosage: 10 GRAM, AS NECESSARY
     Route: 048
  25. LOVENOX [Concomitant]
     Active Substance: ENOXAPARIN SODIUM
     Indication: Product used for unknown indication
     Dosage: UNK UNK, ONCE A DAY
     Route: 065
  26. ACETAMINOPHEN [Concomitant]
     Active Substance: ACETAMINOPHEN
     Indication: Product used for unknown indication
     Dosage: UNK
     Route: 065
  27. SACOLENE [Concomitant]
     Indication: Product used for unknown indication
     Dosage: UNK
     Route: 065
  28. SMECTA [Concomitant]
     Active Substance: MONTMORILLONITE
     Indication: Product used for unknown indication
     Dosage: UNK
     Route: 065
  29. RACECADOTRIL [Concomitant]
     Active Substance: RACECADOTRIL
     Indication: Product used for unknown indication
     Dosage: UNK
     Route: 065
  30. TRAMADOL HYDROCHLORIDE [Concomitant]
     Active Substance: TRAMADOL HYDROCHLORIDE
     Indication: Product used for unknown indication
     Dosage: 1 DOSAGE FORM, TWO TIMES A DAY
     Route: 065
  31. URAPIDIL [Concomitant]
     Active Substance: URAPIDIL
     Indication: Product used for unknown indication
     Dosage: 30 MILLIGRAM, 3 TIMES A DAY
     Route: 065
  32. ZOCOR [Concomitant]
     Active Substance: SIMVASTATIN
     Indication: Product used for unknown indication
     Dosage: 20 MILLIGRAM, ONCE A DAY
     Route: 048

REACTIONS (17)
  - Hepatic cytolysis [Recovered/Resolved]
  - Cardio-respiratory arrest [Recovered/Resolved]
  - Toxic encephalopathy [Unknown]
  - Suicide attempt [Recovered/Resolved]
  - Pneumonia staphylococcal [Recovered/Resolved]
  - Pneumonia [Recovered/Resolved]
  - Pneumonia haemophilus [Recovered/Resolved]
  - Coma [Recovered/Resolved]
  - Acute respiratory distress syndrome [Recovered/Resolved]
  - Lung disorder [Recovered/Resolved]
  - Dysphonia [Unknown]
  - Anaemia [Unknown]
  - Toxicity to various agents [Recovered/Resolved]
  - Amnesia [Unknown]
  - Respiratory acidosis [Recovered/Resolved]
  - Thrombocytosis [Not Recovered/Not Resolved]
  - Intentional overdose [Recovered/Resolved]

NARRATIVE: CASE EVENT DATE: 20160101
